FAERS Safety Report 6054966-7 (Version None)
Quarter: 2009Q1

REPORT INFORMATION
  Report Type: 
  Country: None (occurrence: None)
  Receive Date: 20090128
  Receipt Date: 20090120
  Transmission Date: 20090719
  Serious: Yes (Other)
  Sender: FDA-Public Use
  Company Number: US-ASTRAZENECA-2009UW02066

PATIENT
  Sex: Male

DRUGS (3)
  1. SEROQUEL XR [Suspect]
     Indication: SCHIZOPHRENIA
     Route: 048
     Dates: start: 20080901, end: 20080915
  2. ABILIFY [Concomitant]
     Route: 048
     Dates: end: 20080901
  3. ABILIFY [Concomitant]
     Route: 048
     Dates: start: 20080901

REACTIONS (1)
  - ATRIAL FIBRILLATION [None]
